FAERS Safety Report 6704659-5 (Version None)
Quarter: 2010Q2

REPORT INFORMATION
  Report Type: 
  Country: None (occurrence: None)
  Receive Date: 20100430
  Receipt Date: 20100422
  Transmission Date: 20101027
  Serious: Yes (Other)
  Sender: FDA-Public Use
  Company Number: JP-JNJFOC-20100403483

PATIENT
  Sex: Male

DRUGS (12)
  1. CRAVIT [Suspect]
     Indication: INFECTION
     Route: 048
  2. CRAVIT [Suspect]
     Indication: CYSTITIS
     Route: 048
  3. PREDNISOLONE [Concomitant]
     Indication: NEPHROTIC SYNDROME
     Route: 048
  4. CRESTOR [Concomitant]
     Route: 048
  5. OMEPRAL [Concomitant]
     Route: 048
  6. DIOVAN [Concomitant]
     Route: 048
  7. COMELIAN [Concomitant]
     Route: 048
  8. FLIVAS [Concomitant]
     Indication: BENIGN PROSTATIC HYPERPLASIA
     Route: 048
  9. TERBINAFINE HCL [Concomitant]
     Route: 048
  10. XYLOCAINE W/ EPINEPHRINE [Concomitant]
     Indication: LOCAL ANAESTHESIA
     Route: 058
  11. ROHYPNOL [Concomitant]
     Route: 048
  12. RHYTHMY [Concomitant]
     Route: 048

REACTIONS (3)
  - ANAPHYLACTIC SHOCK [None]
  - NAUSEA [None]
  - VOMITING [None]
